FAERS Safety Report 18728016 (Version 1)
Quarter: 2021Q1

REPORT INFORMATION
  Report Type: Spontaneous
  Country: US (occurrence: US)
  Receive Date: 20210112
  Receipt Date: 20210112
  Transmission Date: 20210419
  Serious: Yes (Other)
  Sender: FDA-Public Use
  Company Number: US-ABBVIE-21K-163-3723684-00

PATIENT
  Sex: Female

DRUGS (1)
  1. MAVYRET [Suspect]
     Active Substance: GLECAPREVIR\PIBRENTASVIR
     Indication: PRODUCT USED FOR UNKNOWN INDICATION
     Route: 048
     Dates: start: 202012

REACTIONS (7)
  - Muscular weakness [Unknown]
  - Guillain-Barre syndrome [Unknown]
  - Musculoskeletal disorder [Unknown]
  - Exposure to communicable disease [Unknown]
  - Paralysis [Unknown]
  - Immunisation reaction [Unknown]
  - Musculoskeletal stiffness [Unknown]
